FAERS Safety Report 6557870-0 (Version None)
Quarter: 2010Q1

REPORT INFORMATION
  Report Type: 
  Country: None (occurrence: None)
  Receive Date: 20100129
  Receipt Date: 20100125
  Transmission Date: 20100710
  Serious: Yes (Life-Threatening)
  Sender: FDA-Public Use
  Company Number: FR-ASTRAZENECA-2010SE03493

PATIENT
  Age: 57 Year
  Sex: Female

DRUGS (3)
  1. DIPRIVAN [Suspect]
     Indication: THERAPEUTIC EMBOLISATION
     Dosage: SINGLE ADMINISTRATION
     Route: 042
     Dates: start: 20090916
  2. TRACRIUM [Suspect]
     Indication: THERAPEUTIC EMBOLISATION
     Dosage: SINGLE ADMINISTRATION
     Route: 042
     Dates: start: 20090916
  3. GELOFUSINE [Suspect]
     Indication: THERAPEUTIC EMBOLISATION
     Dosage: SINGLE ADMINISTRATION
     Route: 042
     Dates: start: 20090916

REACTIONS (1)
  - ANAPHYLACTIC SHOCK [None]
